FAERS Safety Report 6652873-X (Version None)
Quarter: 2010Q1

REPORT INFORMATION
  Report Type: 
  Country: None (occurrence: None)
  Receive Date: 20100325
  Receipt Date: 20100325
  Transmission Date: 20100710
  Serious: No
  Sender: FDA-Public Use
  Company Number: None

PATIENT
  Sex: Female

DRUGS (2)
  1. CEFPROZIL [Suspect]
     Dosage: 500MG BID PO
     Route: 048
  2. MOTRIN [Concomitant]

REACTIONS (1)
  - STEVENS-JOHNSON SYNDROME [None]
